FAERS Safety Report 9678977 (Version 3)
Quarter: 2013Q4

REPORT INFORMATION
  Report Type: Spontaneous
  Country: US (occurrence: None)
  Receive Date: 20131107
  Receipt Date: 20131129
  Transmission Date: 20140711
  Serious: Yes (Other)
  Sender: FDA-Public Use
  Company Number: 2013P1020282

PATIENT
  Age: 57 Year
  Sex: Female

DRUGS (9)
  1. PREDNISONE [Suspect]
     Indication: RENAL TRANSPLANT
     Route: 048
     Dates: start: 1984
  2. PREDNISONE TABLETS USP 5 MG [Suspect]
     Indication: RENAL TRANSPLANT
     Route: 048
     Dates: start: 201304
  3. PREDNISONE [Suspect]
     Indication: RENAL TRANSPLANT
     Dates: start: 201304, end: 2013
  4. IMURAN [Suspect]
     Indication: RENAL TRANSPLANT
     Dates: start: 1984, end: 201310
  5. NEXIUM [Concomitant]
  6. MORPHINE [Concomitant]
  7. OXYCODONE 10 MG [Concomitant]
  8. CRESTOR [Concomitant]
  9. ZOLPIDEM [Concomitant]

REACTIONS (12)
  - Arthralgia [None]
  - Bone density decreased [None]
  - Bone pain [None]
  - Fall [None]
  - Upper limb fracture [None]
  - Night sweats [None]
  - Vomiting [None]
  - Arthritis [None]
  - Tooth loss [None]
  - Skin cancer [None]
  - Pain [None]
  - Lip squamous cell carcinoma [None]
